FAERS Safety Report 7034399-7 (Version None)
Quarter: 2010Q4

REPORT INFORMATION
  Report Type: 
  Country: None (occurrence: None)
  Receive Date: 20101008
  Receipt Date: 20100927
  Transmission Date: 20110411
  Serious: Yes (Other)
  Sender: FDA-Public Use
  Company Number: PHHY2010DE64787

PATIENT
  Sex: Male

DRUGS (3)
  1. RITALIN LA [Suspect]
     Indication: ATTENTION DEFICIT/HYPERACTIVITY DISORDER
     Dosage: UNK
     Dates: start: 20100401
  2. TIAPRIDE [Concomitant]
     Indication: CONVULSION
     Dosage: 3 DF, QD
  3. METHYLPHENIDATE [Concomitant]
     Indication: ATTENTION DEFICIT/HYPERACTIVITY DISORDER
     Dosage: 0.5 DF, QD

REACTIONS (6)
  - AGGRESSION [None]
  - DEPRESSION [None]
  - IRRITABILITY [None]
  - LIBIDO INCREASED [None]
  - SUICIDAL BEHAVIOUR [None]
  - THINKING ABNORMAL [None]
